FAERS Safety Report 4883836-2 (Version None)
Quarter: 2006Q1

REPORT INFORMATION
  Report Type: 
  Country: None (occurrence: None)
  Receive Date: 20060112
  Receipt Date: 20051227
  Transmission Date: 20060701
  Serious: Yes (Hospitalization)
  Sender: FDA-Public Use
  Company Number: 220622

PATIENT
  Age: 35 Year
  Sex: Female

DRUGS (1)
  1. RAPTIVA [Suspect]
     Dates: end: 20051215

REACTIONS (3)
  - APHTHOUS STOMATITIS [None]
  - GLOSSITIS [None]
  - HERPES SIMPLEX [None]
